FAERS Safety Report 25806605 (Version 2)
Quarter: 2025Q4

REPORT INFORMATION
  Report Type: Spontaneous
  Country: US (occurrence: US)
  Receive Date: 20250916
  Receipt Date: 20251006
  Transmission Date: 20260118
  Serious: Yes (Other)
  Sender: CHIMERIX
  Company Number: US-CHIMERIX-US-CHI-25-000223

PATIENT
  Sex: Female
  Weight: 64.4 kg

DRUGS (3)
  1. MODEYSO [Suspect]
     Active Substance: DORDAVIPRONE
     Indication: Brain neoplasm malignant
     Dosage: 625 MILLIGRAM, WEEKLY
     Route: 048
     Dates: start: 202508
  2. LEVETIRACETAM [Concomitant]
     Active Substance: LEVETIRACETAM
     Indication: Product used for unknown indication
  3. MEMANTINE [Concomitant]
     Active Substance: MEMANTINE
     Indication: Product used for unknown indication
     Dosage: UNK

REACTIONS (1)
  - Disease progression [Unknown]
